FAERS Safety Report 20675294 (Version 1)
Quarter: 2022Q2

REPORT INFORMATION
  Report Type: Report from Study
  Country: FR (occurrence: FR)
  Receive Date: 20220405
  Receipt Date: 20220405
  Transmission Date: 20220720
  Serious: Yes (Death, Other)
  Sender: FDA-Public Use
  Company Number: FR-GLAXOSMITHKLINE-FR2022EME059394

PATIENT
  Age: 66 Year
  Sex: Female
  Weight: 67 kg

DRUGS (14)
  1. BELANTAMAB MAFODOTIN [Suspect]
     Active Substance: BELANTAMAB MAFODOTIN
     Indication: Plasma cell myeloma
     Dosage: 165 MG/KG, EVERY 3 WEEKS
     Route: 042
     Dates: start: 20210222, end: 20210406
  2. BELANTAMAB MAFODOTIN [Suspect]
     Active Substance: BELANTAMAB MAFODOTIN
     Dosage: 167 MG/KG, EVERY 3 WEEK
     Route: 042
     Dates: start: 20210315
  3. BELANTAMAB MAFODOTIN [Suspect]
     Active Substance: BELANTAMAB MAFODOTIN
     Dosage: 167 MG/KG, EVERY 3 WEEK
     Route: 042
     Dates: start: 20210406
  4. FARYDAK [Concomitant]
     Active Substance: PANOBINOSTAT
     Dosage: UNK
     Dates: start: 201810
  5. REVLIMID [Concomitant]
     Active Substance: LENALIDOMIDE
     Dosage: UNK
     Dates: start: 201810
  6. DEXAMETHASONE [Concomitant]
     Active Substance: DEXAMETHASONE
     Dosage: UNK
     Dates: start: 201810
  7. DEXAMETHASONE [Concomitant]
     Active Substance: DEXAMETHASONE
     Dosage: UNK
     Dates: start: 20200608
  8. DEXAMETHASONE [Concomitant]
     Active Substance: DEXAMETHASONE
     Dosage: UNK
     Dates: start: 20200928
  9. DEXAMETHASONE [Concomitant]
     Active Substance: DEXAMETHASONE
     Dosage: UNK
     Dates: start: 20210426, end: 20210716
  10. KYPROLIS [Concomitant]
     Active Substance: CARFILZOMIB
     Dosage: UNK
     Dates: start: 20200608
  11. BENDAMUSTINE [Concomitant]
     Active Substance: BENDAMUSTINE
     Dosage: UNK
     Dates: start: 20200928
  12. VELCADE [Concomitant]
     Active Substance: BORTEZOMIB
     Dosage: UNK
     Dates: start: 20200920
  13. SARCLISA [Concomitant]
     Active Substance: ISATUXIMAB-IRFC
     Dosage: UNK
     Dates: start: 20210426, end: 20210716
  14. POMALIDOMIDE [Concomitant]
     Active Substance: POMALIDOMIDE
     Dosage: UNK
     Dates: start: 20210426, end: 20210716

REACTIONS (3)
  - Plasma cell myeloma [Fatal]
  - Thrombocytopenia [Unknown]
  - Keratopathy [Recovering/Resolving]

NARRATIVE: CASE EVENT DATE: 20210330
